FAERS Safety Report 7738931-7 (Version None)
Quarter: 2011Q3

REPORT INFORMATION
  Report Type: 
  Country: None (occurrence: None)
  Receive Date: 20110909
  Receipt Date: 20110901
  Transmission Date: 20111222
  Serious: No
  Sender: FDA-Public Use
  Company Number: US-BIOGENIDEC-2011BI011920

PATIENT
  Age: 65 Year
  Sex: Female

DRUGS (2)
  1. COPAXONE [Concomitant]
     Dates: start: 20110429
  2. TYSABRI [Suspect]
     Indication: MULTIPLE SCLEROSIS
     Route: 042
     Dates: start: 20101222, end: 20110513

REACTIONS (11)
  - ABDOMINAL PAIN UPPER [None]
  - DIPLOPIA [None]
  - PARAESTHESIA [None]
  - HEMIPARESIS [None]
  - MULTIPLE SCLEROSIS RELAPSE [None]
  - COELIAC DISEASE [None]
  - POOR VENOUS ACCESS [None]
  - BALANCE DISORDER [None]
  - DIARRHOEA [None]
  - PERONEAL NERVE PALSY [None]
  - INFUSION SITE HAEMATOMA [None]
